FAERS Safety Report 19888348 (Version 3)
Quarter: 2023Q1

REPORT INFORMATION
  Report Type: Report from Study
  Country: CA (occurrence: None)
  Receive Date: 20210928
  Receipt Date: 20230130
  Transmission Date: 20230418
  Serious: Yes (Other)
  Sender: FDA-Public Use
  Company Number: CA-ORION CORPORATION ORION PHARMA-TREX2019-4990

PATIENT
  Age: 12 Year
  Sex: Female

DRUGS (28)
  1. METHOTREXATE [Suspect]
     Active Substance: METHOTREXATE
     Indication: Product used for unknown indication
     Route: 065
  2. METHOTREXATE [Suspect]
     Active Substance: METHOTREXATE
     Route: 065
  3. METHOTREXATE [Suspect]
     Active Substance: METHOTREXATE
     Route: 058
  4. CYCLOSPORINE [Suspect]
     Active Substance: CYCLOSPORINE
     Indication: Product used for unknown indication
     Route: 065
  5. ILARIS [Suspect]
     Active Substance: CANAKINUMAB
     Indication: Still^s disease
     Route: 058
  6. ILARIS [Suspect]
     Active Substance: CANAKINUMAB
     Route: 058
  7. ILARIS [Suspect]
     Active Substance: CANAKINUMAB
     Route: 058
  8. ILARIS [Suspect]
     Active Substance: CANAKINUMAB
     Route: 058
  9. ILARIS [Suspect]
     Active Substance: CANAKINUMAB
     Route: 058
  10. ILARIS [Suspect]
     Active Substance: CANAKINUMAB
     Route: 058
  11. ILARIS [Suspect]
     Active Substance: CANAKINUMAB
     Route: 058
  12. ILARIS [Suspect]
     Active Substance: CANAKINUMAB
     Route: 058
  13. ILARIS [Suspect]
     Active Substance: CANAKINUMAB
     Route: 058
  14. ILARIS [Suspect]
     Active Substance: CANAKINUMAB
     Route: 058
  15. ILARIS [Suspect]
     Active Substance: CANAKINUMAB
     Route: 058
  16. ILARIS [Suspect]
     Active Substance: CANAKINUMAB
     Route: 058
  17. ILARIS [Suspect]
     Active Substance: CANAKINUMAB
     Route: 058
  18. ILARIS [Suspect]
     Active Substance: CANAKINUMAB
     Route: 058
  19. ILARIS [Suspect]
     Active Substance: CANAKINUMAB
     Route: 058
  20. ILARIS [Suspect]
     Active Substance: CANAKINUMAB
     Route: 065
  21. INDOMETHACIN [Concomitant]
     Active Substance: INDOMETHACIN
     Route: 065
  22. PREDNISONE [Concomitant]
     Active Substance: PREDNISONE
     Route: 065
  23. PREDNISONE [Concomitant]
     Active Substance: PREDNISONE
     Route: 065
  24. CYCLOSPORINE [Concomitant]
     Active Substance: CYCLOSPORINE
     Route: 065
  25. CYCLOSPORINE [Concomitant]
     Active Substance: CYCLOSPORINE
     Route: 065
  26. ACTEMRA [Concomitant]
     Active Substance: TOCILIZUMAB
     Route: 042
  27. ACTEMRA [Concomitant]
     Active Substance: TOCILIZUMAB
     Route: 041
  28. ANAKINRA [Concomitant]
     Active Substance: ANAKINRA
     Route: 058

REACTIONS (14)
  - Therapeutic product effect decreased [Recovered/Resolved]
  - Arthropod bite [Recovered/Resolved]
  - Condition aggravated [Recovered/Resolved]
  - Erythema [Recovered/Resolved]
  - Hepatic enzyme increased [Recovered/Resolved]
  - Pruritus [Recovered/Resolved]
  - Scratch [Recovered/Resolved]
  - Skin lesion [Recovered/Resolved]
  - Still^s disease [Recovered/Resolved]
  - Fatigue [Recovered/Resolved]
  - Urticaria [Recovered/Resolved]
  - Drug ineffective [Recovering/Resolving]
  - Rash [Recovering/Resolving]
  - Stress [Recovering/Resolving]
